FAERS Safety Report 5346402-0 (Version None)
Quarter: 2007Q2

REPORT INFORMATION
  Report Type: 
  Country: None (occurrence: None)
  Receive Date: 20070430
  Receipt Date: 20070328
  Transmission Date: 20071010
  Serious: No
  Sender: FDA-Public Use
  Company Number: 012897

PATIENT
  Age: 84 Year
  Sex: Female

DRUGS (3)
  1. PRIALT [Suspect]
     Indication: PAIN
     Dosage: SEE IMAGE
     Route: 037
     Dates: end: 20070228
  2. PRIALT [Suspect]
     Indication: PAIN
     Dosage: SEE IMAGE
     Route: 037
     Dates: start: 20060927
  3. FENTANYL [Concomitant]

REACTIONS (5)
  - DYSGEUSIA [None]
  - ORAL DISCHARGE [None]
  - ORAL PAIN [None]
  - RECTAL DISCHARGE [None]
  - WEIGHT DECREASED [None]
